FAERS Safety Report 9982536 (Version 2)
Quarter: 2014Q2

REPORT INFORMATION
  Report Type: Spontaneous
  Country: US (occurrence: US)
  Receive Date: 20140307
  Receipt Date: 20140404
  Transmission Date: 20141212
  Serious: Yes (Death, Hospitalization, Other)
  Sender: FDA-Public Use
  Company Number: US-MALLINCKRODT-T201401412

PATIENT
  Age: 63 Year
  Sex: Female

DRUGS (12)
  1. OPTIMARK [Suspect]
     Indication: NUCLEAR MAGNETIC RESONANCE IMAGING
     Dosage: UNK
     Route: 065
     Dates: start: 20061111, end: 20061111
  2. OPTIMARK [Suspect]
     Indication: ANGIOGRAM
  3. OMNISCAN [Suspect]
     Indication: NUCLEAR MAGNETIC RESONANCE IMAGING ABDOMINAL
     Dosage: UNK
     Route: 065
     Dates: start: 20030506, end: 20030506
  4. OMNISCAN [Suspect]
     Indication: NUCLEAR MAGNETIC RESONANCE IMAGING
     Dosage: UNK
     Route: 065
     Dates: start: 20040106, end: 20040106
  5. OMNISCAN [Suspect]
     Dosage: UNK
     Route: 065
     Dates: start: 20050202, end: 20050202
  6. OMNISCAN [Suspect]
     Dosage: UNK
     Route: 065
     Dates: start: 20050206, end: 20050206
  7. MAGNEVIST [Suspect]
     Indication: NUCLEAR MAGNETIC RESONANCE IMAGING
     Dosage: UNK
     Route: 065
     Dates: start: 20031204, end: 20031204
  8. ASPIRIN [Concomitant]
     Indication: ANTIINFLAMMATORY THERAPY
     Dosage: UNK
     Dates: start: 2003, end: 2013
  9. LASIX [Concomitant]
     Indication: BLOOD PRESSURE
     Dosage: UNK
     Dates: start: 2004, end: 2013
  10. LANTUS [Concomitant]
     Indication: DIABETES MELLITUS
     Dosage: UNK
     Dates: start: 2003, end: 2013
  11. HUMALOG [Concomitant]
     Indication: DIABETES MELLITUS
     Dosage: UNK
     Dates: start: 2003, end: 2013
  12. PREDNISONE [Concomitant]
     Dosage: UNK
     Dates: start: 2003, end: 2013

REACTIONS (38)
  - Nephrogenic systemic fibrosis [Unknown]
  - Cardiac failure chronic [Fatal]
  - Atrial fibrillation [Fatal]
  - Diabetes mellitus [Fatal]
  - Renal failure chronic [Fatal]
  - Pneumonia [Unknown]
  - Sleep apnoea syndrome [Unknown]
  - Blood glucose decreased [Unknown]
  - Dizziness [Unknown]
  - Septic shock [Unknown]
  - Dehydration [Unknown]
  - Pyrexia [Unknown]
  - Enterococcal infection [Unknown]
  - Pulmonary hypertension [Unknown]
  - Urosepsis [Unknown]
  - Hand fracture [Unknown]
  - Hip fracture [Unknown]
  - Anaemia [Unknown]
  - Syncope [Unknown]
  - Convulsion [Unknown]
  - Influenza like illness [Unknown]
  - Mental status changes [Unknown]
  - Chest pain [Unknown]
  - Dyspnoea [Unknown]
  - Constipation [Unknown]
  - Urinary tract infection [Unknown]
  - Fall [Unknown]
  - Rash pruritic [Recovered/Resolved]
  - Peripheral swelling [Unknown]
  - Pain in extremity [Unknown]
  - Somnolence [Unknown]
  - Pleural effusion [Unknown]
  - Nausea [Unknown]
  - Atrophic vulvovaginitis [Unknown]
  - Uterine cervix atrophy [Unknown]
  - Intermittent claudication [Unknown]
  - Contusion [Unknown]
  - Abdominal pain [Unknown]
